FAERS Safety Report 8865558 (Version 1)
Quarter: 2012Q4

REPORT INFORMATION
  Report Type: 
  Country: US (occurrence: US)
  Receive Date: 20121024
  Receipt Date: 20121024
  Transmission Date: 20130627
  Serious: No
  Sender: FDA-Public Use
  Company Number: US-AMGEN-USASP2012003569

PATIENT
  Age: 46 Year
  Sex: Male
  Weight: 124.72 kg

DRUGS (5)
  1. ENBREL [Suspect]
     Indication: PRODUCT USED FOR UNKNOWN INDICATION
     Dosage: 50 mg, qwk
  2. ANDROGEL [Concomitant]
     Dosage: UNK
  3. MULTIVITAMIN                       /00097801/ [Concomitant]
  4. FISH OIL [Concomitant]
  5. VITAMIN D3 [Concomitant]

REACTIONS (2)
  - Oropharyngeal pain [Unknown]
  - Headache [Unknown]
